FAERS Safety Report 4864351-9 (Version None)
Quarter: 2005Q4

REPORT INFORMATION
  Report Type: 
  Country: None (occurrence: None)
  Receive Date: 20051222
  Receipt Date: 20050421
  Transmission Date: 20060501
  Serious: Yes (Other)
  Sender: FDA-Public Use
  Company Number: US-MERCK-0504USA04243

PATIENT
  Sex: Male

DRUGS (1)
  1. VIOXX [Suspect]
     Route: 048
     Dates: start: 20020801, end: 20040101

REACTIONS (4)
  - ANGINA UNSTABLE [None]
  - CARDIAC ENZYMES INCREASED [None]
  - ELECTROCARDIOGRAM ABNORMAL [None]
  - INJURY [None]
